FAERS Safety Report 6032309-2 (Version None)
Quarter: 2008Q4

REPORT INFORMATION
  Report Type: 
  Country: None (occurrence: None)
  Receive Date: 20081222
  Receipt Date: 20081114
  Transmission Date: 20090506
  Serious: No
  Sender: FDA-Public Use
  Company Number: US-WYE-H06854008

PATIENT
  Age: 32 Year
  Sex: Female
  Weight: 89.44 kg

DRUGS (4)
  1. PRISTIQ [Suspect]
     Indication: DEPRESSION
     Dosage: 50 MG 1X PER 1 DAY, ORAL
     Route: 048
     Dates: start: 20081103
  2. MULTIVITAMINS (ASCORBIC ACID/ERGOCALCIFEROL/FOLIC ACID/NICOTINAMIDE/PA [Concomitant]
  3. METFORMIN HCL [Concomitant]
  4. VITAMIN D [Concomitant]

REACTIONS (2)
  - FEELING ABNORMAL [None]
  - THINKING ABNORMAL [None]
